FAERS Safety Report 8975747 (Version 2)
Quarter: 2013Q2

REPORT INFORMATION
  Report Type: Spontaneous
  Country: US (occurrence: US)
  Receive Date: 20121219
  Receipt Date: 20130606
  Transmission Date: 20140414
  Serious: No
  Sender: FDA-Public Use
  Company Number: US-AMGEN-USASP2012070689

PATIENT
  Age: 59 Year
  Sex: Female
  Weight: 67.12 kg

DRUGS (2)
  1. PROLIA [Suspect]
     Indication: SENILE OSTEOPOROSIS
     Dosage: 60 MG, UNK
     Route: 058
     Dates: start: 20120824
  2. NEXIUM                             /01479302/ [Concomitant]
     Indication: GASTROINTESTINAL DISORDER
     Dosage: 40 MG, QD
     Route: 048

REACTIONS (3)
  - Jaw disorder [Unknown]
  - Mastication disorder [Unknown]
  - Tooth disorder [Unknown]
